FAERS Safety Report 16826896 (Version 1)
Quarter: 2019Q3

REPORT INFORMATION
  Report Type: Spontaneous
  Country: US (occurrence: US)
  Receive Date: 20190727
  Receipt Date: 20190727
  Transmission Date: 20191005
  Serious: Yes (Hospitalization)
  Sender: FDA-Public Use
  Company Number: None

PATIENT
  Age: 68 Year
  Sex: Male
  Weight: 80.69 kg

DRUGS (2)
  1. GLIPIZIDE. [Suspect]
     Active Substance: GLIPIZIDE
     Indication: DIABETES MELLITUS
     Route: 048
     Dates: start: 20131218
  2. METFORMIN [Suspect]
     Active Substance: METFORMIN HYDROCHLORIDE
     Indication: DIABETES MELLITUS
     Route: 048
     Dates: end: 20040727

REACTIONS (8)
  - Hypoglycaemia [None]
  - Middle insomnia [None]
  - Dizziness [None]
  - Disturbance in attention [None]
  - Slow response to stimuli [None]
  - Confusional state [None]
  - Asthenia [None]
  - Pallor [None]

NARRATIVE: CASE EVENT DATE: 20190409
